FAERS Safety Report 19734306 (Version 1)
Quarter: 2021Q3

REPORT INFORMATION
  Report Type: Report from Study
  Country: US (occurrence: US)
  Receive Date: 20210823
  Receipt Date: 20210823
  Transmission Date: 20211014
  Serious: No
  Sender: FDA-Public Use
  Company Number: US-BIOVITRUM-2021US2037

PATIENT
  Age: 23 Year
  Sex: Male

DRUGS (1)
  1. KINERET [Suspect]
     Active Substance: ANAKINRA
     Indication: GOUT
     Dosage: AS DIRECTED
     Route: 058
     Dates: start: 20200326

REACTIONS (4)
  - Suspected COVID-19 [Unknown]
  - Off label use [Unknown]
  - Arthralgia [Unknown]
  - Blood uric acid increased [Unknown]

NARRATIVE: CASE EVENT DATE: 20200326
